FAERS Safety Report 8226310-8 (Version None)
Quarter: 2012Q1

REPORT INFORMATION
  Report Type: 
  Country: None (occurrence: None)
  Receive Date: 20120307
  Receipt Date: 20100723
  Transmission Date: 20120608
  Serious: Yes (Hospitalization, Other)
  Sender: FDA-Public Use
  Company Number: PHHY2010US48830

PATIENT
  Age: 67 Year
  Sex: Female

DRUGS (2)
  1. AFINITOR [Suspect]
     Indication: METASTASES TO KIDNEY
     Dosage: 10 MG, QD, ORAL
     Route: 048
     Dates: start: 20100201, end: 20100701
  2. AFINITOR [Suspect]
     Indication: RENAL CANCER
     Dosage: 10 MG, QD, ORAL
     Route: 048
     Dates: start: 20100201, end: 20100701

REACTIONS (6)
  - RENAL FAILURE [None]
  - ANAEMIA [None]
  - NEOPLASM MALIGNANT [None]
  - VOMITING [None]
  - HYPERKALAEMIA [None]
  - ASTHENIA [None]
